FAERS Safety Report 8262167-7 (Version None)
Quarter: 2012Q2

REPORT INFORMATION
  Report Type: 
  Country: None (occurrence: None)
  Receive Date: 20120405
  Receipt Date: 20120329
  Transmission Date: 20120825
  Serious: Yes (Other)
  Sender: FDA-Public Use
  Company Number: JP-PFIZER INC-2012068877

PATIENT
  Age: 84 Year
  Sex: Male

DRUGS (2)
  1. SALMETEROL XINAFOATE [Concomitant]
  2. VFEND [Suspect]
     Indication: BRONCHOPULMONARY ASPERGILLOSIS
     Dosage: 400 MG, 1X/DAY
     Route: 048
     Dates: start: 20120210

REACTIONS (1)
  - INTESTINAL OBSTRUCTION [None]
